FAERS Safety Report 25910964 (Version 2)
Quarter: 2025Q4

REPORT INFORMATION
  Report Type: Spontaneous
  Country: US (occurrence: US)
  Receive Date: 20251013
  Receipt Date: 20251113
  Transmission Date: 20260117
  Serious: No
  Sender: ROCHE
  Company Number: US-ROCHE-10000407656

PATIENT
  Age: 60 Year
  Sex: Female
  Weight: 63.5 kg

DRUGS (9)
  1. ACTEMRA [Suspect]
     Active Substance: TOCILIZUMAB
     Indication: Giant cell arteritis
     Route: 058
     Dates: start: 20250904, end: 20250904
  2. ACTEMRA [Suspect]
     Active Substance: TOCILIZUMAB
     Indication: Polymyalgia rheumatica
  3. BREO ELLIPTA [Concomitant]
     Active Substance: FLUTICASONE FUROATE\VILANTEROL TRIFENATATE
     Dosage: 1 PUFF DAILY
     Route: 055
  4. LEVOTHYROXINE [Concomitant]
     Active Substance: LEVOTHYROXINE
  5. PROGESTERONE [Concomitant]
     Active Substance: PROGESTERONE
  6. DULOXETINE [Concomitant]
     Active Substance: DULOXETINE
  7. LYRICA [Concomitant]
     Active Substance: PREGABALIN
     Dates: start: 2025
  8. ESTRADIOL [Concomitant]
     Active Substance: ESTRADIOL
     Dosage: .75 MG PATCH
  9. CORTISONE [Concomitant]
     Active Substance: CORTISONE

REACTIONS (6)
  - Rash [Not Recovered/Not Resolved]
  - Breast tenderness [Not Recovered/Not Resolved]
  - Nipple pain [Not Recovered/Not Resolved]
  - Fatigue [Not Recovered/Not Resolved]
  - Pruritus [Unknown]
  - Breast swelling [Unknown]

NARRATIVE: CASE EVENT DATE: 20250904
